FAERS Safety Report 14224052 (Version 1)
Quarter: 2017Q4

REPORT INFORMATION
  Report Type: Spontaneous
  Country: US (occurrence: US)
  Receive Date: 20171124
  Receipt Date: 20171124
  Transmission Date: 20180321
  Serious: No
  Sender: FDA-Public Use
  Company Number: None

PATIENT
  Age: 63 Year
  Sex: Female
  Weight: 60.75 kg

DRUGS (6)
  1. SERTRALINE [Concomitant]
     Active Substance: SERTRALINE HYDROCHLORIDE
  2. REFRESH OPTIVE GEL DROPS [Suspect]
     Active Substance: CARBOXYMETHYLCELLULOSE SODIUM\GLYCERIN
     Indication: DRY EYE
     Dosage: ?          QUANTITY:1 DROP(S);?
     Route: 047
     Dates: start: 20171116, end: 20171117
  3. VITAMIN D [Concomitant]
     Active Substance: CHOLECALCIFEROL
  4. MULTI VITAMIN/MINERAL [Concomitant]
     Active Substance: MINERALS\VITAMINS
  5. CALCIUM/MAGNESIUM [Concomitant]
     Active Substance: CALCIUM\MAGNESIUM
  6. VITAMIN C [Concomitant]
     Active Substance: ASCORBIC ACID

REACTIONS (7)
  - Wrong drug administered [None]
  - Eye pain [None]
  - Mydriasis [None]
  - Product label on wrong product [None]
  - Visual brightness [None]
  - Visual impairment [None]
  - Drug dispensing error [None]

NARRATIVE: CASE EVENT DATE: 20171116
